FAERS Safety Report 23351784 (Version 1)
Quarter: 2023Q4

REPORT INFORMATION
  Report Type: Spontaneous
  Country: US (occurrence: None)
  Receive Date: 20231229
  Receipt Date: 20231229
  Transmission Date: 20240110
  Serious: Yes (Other)
  Sender: FDA-Public Use
  Company Number: None

PATIENT
  Sex: Female

DRUGS (1)
  1. HUMIRA [Suspect]
     Active Substance: ADALIMUMAB
     Indication: Mixed connective tissue disease
     Dosage: OTHER QUANTITY : 40MG/0.4ML;?FREQUENCY : AS DIRECTED;?INJECT 0.4 MILLILITER BY SUBCUTANEOUS ROUTE EV
     Route: 058
     Dates: start: 20230419

REACTIONS (2)
  - Surgery [None]
  - Therapy interrupted [None]
